FAERS Safety Report 19305635 (Version 1)
Quarter: 2021Q2

REPORT INFORMATION
  Report Type: Report from Study
  Country: IT (occurrence: IT)
  Receive Date: 20210526
  Receipt Date: 20210526
  Transmission Date: 20210717
  Serious: Yes (Other)
  Sender: FDA-Public Use
  Company Number: IT-TEVA-2021-IT-1914353

PATIENT
  Age: 60 Year
  Sex: Female

DRUGS (2)
  1. TAVOR 2,5 MG COMPRESSE [Suspect]
     Active Substance: LORAZEPAM
     Indication: DRUG ABUSE
     Dosage: 1 DF
     Route: 048
     Dates: start: 20210324, end: 20210324
  2. QUETIAPINE FUMARATE. [Suspect]
     Active Substance: QUETIAPINE FUMARATE
     Indication: DRUG ABUSE
     Dosage: 1 DF
     Route: 048
     Dates: start: 20210324, end: 20210324

REACTIONS (2)
  - Psychomotor hyperactivity [Unknown]
  - Drug abuse [Unknown]

NARRATIVE: CASE EVENT DATE: 20210324
